FAERS Safety Report 9971318 (Version 3)
Quarter: 2014Q2

REPORT INFORMATION
  Report Type: Spontaneous
  Country: US (occurrence: None)
  Receive Date: 20140304
  Receipt Date: 20140409
  Transmission Date: 20141212
  Serious: Yes (Other)
  Sender: FDA-Public Use
  Company Number: QSC-2014-0106

PATIENT
  Age: 12 Year
  Sex: Female

DRUGS (6)
  1. H.P. ACTHAR GEL [Suspect]
     Indication: JUVENILE IDIOPATHIC ARTHRITIS
     Route: 058
     Dates: start: 20131126, end: 201402
  2. CYCLOSPORINE (CICLOSPORIN) [Suspect]
     Route: 048
     Dates: start: 20140127
  3. MEDROL (METHYLPREDNISOLONE ACETATE) [Concomitant]
  4. SOLUMEDROL (METHYLPREDNISOLONE SODIUM) [Concomitant]
  5. VORICONAZOLE (VORICONAZOLE) [Concomitant]
  6. VALCYTE (VALGANCICLOVIR HYDROCHLORIDE) (VALGANCICLOVIR HYDROCHLORIDE) [Concomitant]

REACTIONS (4)
  - Tachycardia [None]
  - Blood pressure increased [None]
  - Drug interaction [None]
  - Toxicity to various agents [None]
